FAERS Safety Report 4889888-8 (Version None)
Quarter: 2006Q1

REPORT INFORMATION
  Report Type: 
  Country: None (occurrence: None)
  Receive Date: 20060120
  Receipt Date: 20060111
  Transmission Date: 20060701
  Serious: Yes (Other)
  Sender: FDA-Public Use
  Company Number: HQWYE310812JAN06

PATIENT
  Age: 34 Year
  Sex: Male

DRUGS (1)
  1. RAPAMUNE [Suspect]
     Indication: COMPLICATIONS OF TRANSPLANT SURGERY
     Dosage: ^2.0 DOSE DAILY^ ORAL
     Route: 048
     Dates: start: 20050411

REACTIONS (1)
  - VASCULAR PSEUDOANEURYSM [None]
